FAERS Safety Report 7150655-6 (Version None)
Quarter: 2010Q4

REPORT INFORMATION
  Report Type: 
  Country: None (occurrence: None)
  Receive Date: 20101210
  Receipt Date: 20101203
  Transmission Date: 20110411
  Serious: Yes (Other)
  Sender: FDA-Public Use
  Company Number: US-JNJFOC-20100905038

PATIENT
  Sex: Female
  Weight: 100 kg

DRUGS (9)
  1. LEVAQUIN [Suspect]
     Indication: URINARY TRACT INFECTION
     Route: 048
  2. KLOR-CON [Concomitant]
     Indication: MUSCLE SPASMS
     Route: 048
  3. AVANDAMET [Concomitant]
     Indication: DIABETES MELLITUS
     Route: 048
  4. BACTRIM [Concomitant]
     Indication: KIDNEY INFECTION
     Route: 048
  5. CORGARD [Concomitant]
     Indication: CARDIAC DISORDER
     Route: 048
  6. HYZAAR [Concomitant]
     Indication: HYPERTENSION
     Route: 048
  7. NORVASC [Concomitant]
     Indication: HYPERTENSION
     Route: 048
  8. ZOLOFT [Concomitant]
     Indication: FEELING OF RELAXATION
     Route: 048
  9. NITROGLYCERIN [Concomitant]
     Indication: CARDIAC DISORDER
     Route: 048

REACTIONS (7)
  - CHEST PAIN [None]
  - HEART RATE IRREGULAR [None]
  - LIP DRY [None]
  - NAUSEA [None]
  - NERVOUSNESS [None]
  - POOR QUALITY SLEEP [None]
  - SWELLING FACE [None]
